FAERS Safety Report 17396781 (Version 3)
Quarter: 2020Q1

REPORT INFORMATION
  Report Type: Spontaneous
  Country: US (occurrence: US)
  Receive Date: 20200210
  Receipt Date: 20200327
  Transmission Date: 20200409
  Serious: No
  Sender: FDA-Public Use
  Company Number: US-PFIZER INC-2020054482

PATIENT
  Age: 72 Year
  Sex: Female
  Weight: 81.63 kg

DRUGS (1)
  1. PREMARIN [Suspect]
     Active Substance: ESTROGENS, CONJUGATED
     Indication: SKIN IRRITATION
     Dosage: UNK, WEEKLY (2 OR 5 TIMES WEEKLY SMALL AMOUNT)

REACTIONS (3)
  - Product use in unapproved indication [Unknown]
  - Off label use [Unknown]
  - Drug effective for unapproved indication [Unknown]
